FAERS Safety Report 24908665 (Version 1)
Quarter: 2025Q1

REPORT INFORMATION
  Report Type: Spontaneous
  Country: IR (occurrence: IR)
  Receive Date: 20250131
  Receipt Date: 20250131
  Transmission Date: 20250409
  Serious: Yes (Death, Hospitalization)
  Sender: STRIDES
  Company Number: IR-STRIDES ARCOLAB LIMITED-2025SP001309

PATIENT
  Age: 2 Year
  Sex: Female

DRUGS (11)
  1. PREDNISOLONE [Suspect]
     Active Substance: PREDNISOLONE
     Indication: Nephrotic syndrome
     Route: 065
  2. PREDNISOLONE [Suspect]
     Active Substance: PREDNISOLONE
     Indication: Primary adrenal insufficiency
  3. CYCLOSPORINE [Suspect]
     Active Substance: CYCLOSPORINE
     Indication: Supplementation therapy
     Route: 065
  4. LEVETIRACETAM [Suspect]
     Active Substance: LEVETIRACETAM
     Indication: Status epilepticus
     Route: 065
  5. LEVETIRACETAM [Suspect]
     Active Substance: LEVETIRACETAM
     Indication: Partial seizures
  6. FUROSEMIDE [Suspect]
     Active Substance: FUROSEMIDE
     Indication: Hypertensive crisis
     Route: 065
  7. AMLODIPINE [Suspect]
     Active Substance: AMLODIPINE BESYLATE
     Indication: Hypertensive crisis
     Route: 065
  8. ATENOLOL [Suspect]
     Active Substance: ATENOLOL
     Indication: Hypertensive crisis
     Route: 065
  9. ALBUMIN HUMAN [Suspect]
     Active Substance: ALBUMIN HUMAN
     Indication: Primary adrenal insufficiency
     Route: 065
  10. ALBUMIN HUMAN [Suspect]
     Active Substance: ALBUMIN HUMAN
     Indication: Nephrotic syndrome
  11. CALCIUM CARBONATE [Suspect]
     Active Substance: CALCIUM CARBONATE
     Indication: Supplementation therapy
     Route: 065

REACTIONS (4)
  - Condition aggravated [Fatal]
  - Drug ineffective [Fatal]
  - Sepsis [Fatal]
  - Off label use [Unknown]
